FAERS Safety Report 9773105 (Version 3)
Quarter: 2014Q1

REPORT INFORMATION
  Report Type: Spontaneous
  Country: US (occurrence: None)
  Receive Date: 20131217
  Receipt Date: 20140224
  Transmission Date: 20141002
  Serious: Yes (Life-Threatening, Hospitalization, Disabling)
  Sender: FDA-Public Use
  Company Number: 2013PL000214

PATIENT
  Age: 1 Year
  Sex: Female
  Weight: 9.7 kg

DRUGS (16)
  1. PROLEUKIN [Suspect]
     Indication: NEUROBLASTOMA
     Route: 042
     Dates: start: 20131111, end: 20131115
  2. GRANULOCYTE MACROPHAGE COLONY STIM FACTOR [Suspect]
     Indication: NEUROBLASTOMA
     Dosage: 110 UG.
  3. ATIVAN [Concomitant]
  4. PEPCID /00706001/ [Concomitant]
  5. ZOVIRAX /00587301/ [Concomitant]
  6. BACTRIM [Concomitant]
  7. ZOFRAN (ONDANSETRON) [Concomitant]
  8. NYSTATIN (NYSTATIN) [Concomitant]
  9. VI DAYLIN (ERGOCALCIFEROL, NIVONITAMINDE, ASCORBIC ACID, RETINOL PALMITATE, RIBOFLAVIN, PYRIDOXINE HYDROCHLORIDE, THIAMINE HYDROCHLORIDE) [Concomitant]
  10. MORPHINE (MORPHINE) [Concomitant]
  11. ATARAX (HYDROXYZINE) [Concomitant]
  12. DIFLUCAN (FLUCONAZOLE) [Concomitant]
  13. DIPHENHYDRAMIN HYDROCHLORIDE (DIPHENHYDRAMINE HYDROCHLORIDE) [Concomitant]
  14. TYLENOL (PARACETAMOL) [Concomitant]
  15. FLAGYL (METRONIDAZOLE) [Concomitant]
  16. ISOTRETINOIN (ISOTRETINOIN) [Suspect]
     Indication: NEUROBLASTOMA
     Route: 048
     Dates: start: 20131021, end: 20131103

REACTIONS (1)
  - Hypokalaemia [None]
